FAERS Safety Report 5240737-8 (Version None)
Quarter: 2007Q1

REPORT INFORMATION
  Report Type: 
  Country: None (occurrence: None)
  Receive Date: 20061208
  Receipt Date: 20050419
  Transmission Date: 20070707
  Serious: Yes (Other)
  Sender: FDA-Public Use
  Company Number: 2005UW06097

PATIENT
  Age: 76 Year
  Sex: Female
  Weight: 86.1 kg

DRUGS (11)
  1. CRESTOR [Suspect]
     Indication: BLOOD CHOLESTEROL INCREASED
     Dosage: 10 MG PO
     Route: 048
     Dates: start: 20050416, end: 20050419
  2. LEVOTHYROXINE SODIUM [Concomitant]
  3. CLONIDINE [Concomitant]
  4. CYSTAGON ^MYLAN^ [Concomitant]
  5. FUROSEMIDE [Concomitant]
  6. ALPRAZOLAM [Concomitant]
  7. GLUCOSAMINE [Concomitant]
  8. OMEGA 3 [Concomitant]
  9. MULTI-VITAMINS [Concomitant]
  10. ASCORBIC ACID [Concomitant]
  11. NO MATCH [Concomitant]

REACTIONS (2)
  - BURNING SENSATION [None]
  - JOINT SWELLING [None]
